FAERS Safety Report 5477098-5 (Version None)
Quarter: 2007Q3

REPORT INFORMATION
  Report Type: 
  Country: None (occurrence: None)
  Receive Date: 20070831
  Receipt Date: 20070703
  Transmission Date: 20080115
  Serious: Yes (Other)
  Sender: FDA-Public Use
  Company Number: US-JNJFOC-20070601020

PATIENT
  Age: 42 Year
  Sex: Female
  Weight: 81.6475 kg

DRUGS (7)
  1. DACOGEN [Suspect]
     Indication: ACUTE MYELOID LEUKAEMIA
     Dosage: 1 IN 1 DAY, INTRAVENOUS
     Route: 042
     Dates: start: 20070501, end: 20070505
  2. MYLOTARG [Suspect]
     Indication: MYELOPROLIFERATIVE DISORDER
     Dosage: 1 IN 1 DAY, INTRAVENOUS
     Route: 042
     Dates: start: 20070520
  3. XANAX [Concomitant]
  4. ATIVAN [Concomitant]
  5. ZOFRAN [Concomitant]
  6. DILAUDID [Concomitant]
  7. OXYDOSE (OXYCORT) [Concomitant]

REACTIONS (1)
  - ACUTE MYELOID LEUKAEMIA [None]
